FAERS Safety Report 8303724-9 (Version None)
Quarter: 2012Q1

REPORT INFORMATION
  Report Type: 
  Country: None (occurrence: None)
  Receive Date: 20120326
  Receipt Date: 20110916
  Transmission Date: 20120608
  Serious: Yes (Other)
  Sender: FDA-Public Use
  Company Number: PHEH2011US04799

PATIENT

DRUGS (1)
  1. TASIGNA [Suspect]

REACTIONS (1)
  - PERICARDIAL EFFUSION [None]
